FAERS Safety Report 17391194 (Version 1)
Quarter: 2020Q1

REPORT INFORMATION
  Report Type: Other
  Country: IT (occurrence: IT)
  Receive Date: 20200207
  Receipt Date: 20200207
  Transmission Date: 20200409
  Serious: Yes (Other)
  Sender: FDA-Public Use
  Company Number: IT-CELLTRION INC.-2020IT018456

PATIENT

DRUGS (2)
  1. BENDAMUSTINE HYDROCHLORIDE. [Suspect]
     Active Substance: BENDAMUSTINE HYDROCHLORIDE
     Indication: MARGINAL ZONE LYMPHOMA
     Dosage: 143 MG, CYCLIC
     Route: 042
     Dates: start: 20191115, end: 20191115
  2. TRUXIMA [Suspect]
     Active Substance: RITUXIMAB-ABBS
     Indication: MARGINAL ZONE LYMPHOMA
     Dosage: 802 MG, CYCLIC
     Route: 042
     Dates: start: 20191115, end: 20191115

REACTIONS (3)
  - Neutropenia [Unknown]
  - Thrombocytopenia [Unknown]
  - Product use in unapproved indication [Unknown]

NARRATIVE: CASE EVENT DATE: 20191212
